FAERS Safety Report 19202683 (Version 1)
Quarter: 2021Q2

REPORT INFORMATION
  Report Type: Spontaneous
  Country: US (occurrence: US)
  Receive Date: 20210430
  Receipt Date: 20210430
  Transmission Date: 20210717
  Serious: No
  Sender: FDA-Public Use
  Company Number: US-JNJFOC-20210436356

PATIENT
  Age: 28 Year
  Sex: Female

DRUGS (16)
  1. IBUPROFEN. [Suspect]
     Active Substance: IBUPROFEN
     Indication: FATIGUE
  2. IBUPROFEN. [Suspect]
     Active Substance: IBUPROFEN
     Indication: HYPERHIDROSIS
  3. TYLENOL [Suspect]
     Active Substance: ACETAMINOPHEN
     Indication: FATIGUE
  4. TYLENOL [Suspect]
     Active Substance: ACETAMINOPHEN
     Indication: HEADACHE
  5. IBUPROFEN. [Suspect]
     Active Substance: IBUPROFEN
     Indication: DECREASED APPETITE
     Route: 048
     Dates: start: 20210411
  6. IBUPROFEN. [Suspect]
     Active Substance: IBUPROFEN
     Indication: HEADACHE
  7. IBUPROFEN. [Suspect]
     Active Substance: IBUPROFEN
     Indication: BODY TEMPERATURE INCREASED
  8. COVID?19 VACCINE NOS. [Concomitant]
     Active Substance: COVID-19 VACCINE NOS
     Indication: PRODUCT USED FOR UNKNOWN INDICATION
     Route: 065
     Dates: start: 20210410
  9. ADVIL [Concomitant]
     Active Substance: IBUPROFEN
     Indication: DECREASED APPETITE
     Route: 065
     Dates: start: 20210411
  10. TYLENOL [Suspect]
     Active Substance: ACETAMINOPHEN
     Indication: DECREASED APPETITE
     Route: 048
     Dates: start: 20210411
  11. TYLENOL [Suspect]
     Active Substance: ACETAMINOPHEN
     Indication: BODY TEMPERATURE INCREASED
  12. ADVIL [Concomitant]
     Active Substance: IBUPROFEN
     Indication: BODY TEMPERATURE INCREASED
  13. TYLENOL [Suspect]
     Active Substance: ACETAMINOPHEN
     Indication: HYPERHIDROSIS
  14. ADVIL [Concomitant]
     Active Substance: IBUPROFEN
     Indication: HYPERHIDROSIS
  15. ADVIL [Concomitant]
     Active Substance: IBUPROFEN
     Indication: HEADACHE
  16. ADVIL [Concomitant]
     Active Substance: IBUPROFEN
     Indication: FATIGUE

REACTIONS (1)
  - Product use in unapproved indication [Unknown]

NARRATIVE: CASE EVENT DATE: 20210411
